FAERS Safety Report 23416713 (Version 1)
Quarter: 2024Q1

REPORT INFORMATION
  Report Type: Spontaneous
  Country: US (occurrence: None)
  Receive Date: 20240117
  Receipt Date: 20240117
  Transmission Date: 20240409
  Serious: Yes (Other)
  Sender: FDA-Public Use
  Company Number: None

PATIENT
  Age: 28 Year
  Sex: Female
  Weight: 73.8 kg

DRUGS (5)
  1. VIVITROL [Suspect]
     Active Substance: NALTREXONE
     Indication: Alcoholism
     Dosage: OTHER FREQUENCY : EVERY 28 DAYS;?
     Route: 030
     Dates: start: 20231121, end: 20231221
  2. QUETIAPINE [Concomitant]
     Active Substance: QUETIAPINE
  3. PREGABALIN [Concomitant]
     Active Substance: PREGABALIN
  4. LURASIDONE [Concomitant]
     Active Substance: LURASIDONE
  5. LAMOTRIGINE [Concomitant]
     Active Substance: LAMOTRIGINE

REACTIONS (3)
  - Injection site swelling [None]
  - Injection site rash [None]
  - Dyspnoea [None]

NARRATIVE: CASE EVENT DATE: 20231224
